FAERS Safety Report 7275194-3 (Version None)
Quarter: 2011Q1

REPORT INFORMATION
  Report Type: 
  Country: None (occurrence: None)
  Receive Date: 20110204
  Receipt Date: 20110126
  Transmission Date: 20110831
  Serious: Yes (Hospitalization, Other)
  Sender: FDA-Public Use
  Company Number: PHHY2011ES07401

PATIENT
  Age: 39 Year
  Sex: Male

DRUGS (2)
  1. MYFORTIC [Suspect]
     Indication: RENAL TRANSPLANT
     Dosage: 1.44 G, UNK
     Route: 048
     Dates: start: 20091202
  2. TACROLIMUS [Interacting]
     Indication: RENAL TRANSPLANT
     Dosage: 8 MG DAILY
     Route: 048
     Dates: start: 20091203, end: 20100201

REACTIONS (7)
  - NAUSEA [None]
  - RASH PAPULAR [None]
  - VOMITING [None]
  - BLOOD CREATININE INCREASED [None]
  - CYTOMEGALOVIRUS INFECTION [None]
  - EPIGASTRIC DISCOMFORT [None]
  - DRUG INTERACTION [None]
